FAERS Safety Report 5571206-3 (Version None)
Quarter: 2007Q4

REPORT INFORMATION
  Report Type: 
  Country: None (occurrence: None)
  Receive Date: 20071221
  Receipt Date: 20070206
  Transmission Date: 20080405
  Serious: No
  Sender: FDA-Public Use
  Company Number: A0638589A

PATIENT
  Age: 50 Year
  Sex: Female

DRUGS (8)
  1. FLUTICASONE PROPIONATE [Suspect]
     Dosage: 4SPR PER DAY
     Route: 045
     Dates: start: 20060601
  2. ZYRTEC [Concomitant]
  3. EFFEXOR [Concomitant]
  4. CLONAZEPAM [Concomitant]
  5. AMBIEN [Concomitant]
  6. VALTREX [Concomitant]
  7. RISPERDAL [Concomitant]
  8. VESICARE [Concomitant]

REACTIONS (2)
  - DRUG INEFFECTIVE [None]
  - SNEEZING [None]
